FAERS Safety Report 4505012-5 (Version None)
Quarter: 2005Q1

REPORT INFORMATION
  Report Type: 
  Country: None (occurrence: None)
  Receive Date: 20041015
  Receipt Date: 20031011
  Transmission Date: 20050727
  Serious: Yes (Other)
  Sender: FDA-Public Use
  Company Number: 2003111954

PATIENT
  Age: 15 Year
  Sex: Female
  Weight: 106.1417 kg

DRUGS (3)
  1. NEURONTIN [Suspect]
     Indication: CONVULSION
     Dosage: 3600 MG (DAILY)
     Dates: end: 20030101
  2. TOPIRAMATE [Suspect]
     Indication: ILL-DEFINED DISORDER
     Dates: start: 20031002, end: 20031001
  3. CLORAZEPATE DIPOTASSIUM [Concomitant]

REACTIONS (11)
  - CONVULSION [None]
  - DRUG WITHDRAWAL SYNDROME [None]
  - EATING DISORDER [None]
  - EYE PAIN [None]
  - FEELING ABNORMAL [None]
  - HEADACHE [None]
  - INTENTIONAL MISUSE [None]
  - MEDICATION ERROR [None]
  - NAUSEA [None]
  - SINUSITIS [None]
  - WEIGHT DECREASED [None]
